FAERS Safety Report 17969498 (Version 3)
Quarter: 2020Q3

REPORT INFORMATION
  Report Type: Spontaneous
  Country: DE (occurrence: DE)
  Receive Date: 20200701
  Receipt Date: 20200728
  Transmission Date: 20201103
  Serious: Yes (Hospitalization)
  Sender: FDA-Public Use
  Company Number: DE-MYLANLABS-2020M1059268

PATIENT
  Age: 57 Year
  Sex: Male
  Weight: 76.5 kg

DRUGS (10)
  1. TORASEMIDE [Suspect]
     Active Substance: TORSEMIDE
     Indication: PRODUCT USED FOR UNKNOWN INDICATION
     Dosage: 10 MG, QD (10 MG, 1.5?0?0?0)
     Route: 065
  2. HYDROCHLOROTHIAZIDE. [Suspect]
     Active Substance: HYDROCHLOROTHIAZIDE
     Indication: PRODUCT USED FOR UNKNOWN INDICATION
     Dosage: 25 MG, QD (25 MG, 0?0?1?0)
     Route: 065
  3. NORSPAN [Concomitant]
     Active Substance: BUPRENORPHINE
     Dosage: 10 MILLIGRAM, QW (10 MG, DIENSTAGS)
     Route: 065
  4. ENTRESTO [Concomitant]
     Active Substance: SACUBITRIL\VALSARTAN
     Indication: PRODUCT USED FOR UNKNOWN INDICATION
     Dosage: UNK, BID (24|26 MG, 1?0?1?0)
     Route: 065
  5. BISOPROLOL [Concomitant]
     Active Substance: BISOPROLOL
     Indication: PRODUCT USED FOR UNKNOWN INDICATION
     Dosage: 10 MILLIGRAM, QD (5 MG, BID, 5 MG, 1?0?1?0)
     Route: 065
  6. NORSPAN                            /00668101/ [Concomitant]
     Indication: PRODUCT USED FOR UNKNOWN INDICATION
     Dosage: 10 MG, QW
     Route: 065
  7. APIXABAN [Concomitant]
     Active Substance: APIXABAN
     Indication: PRODUCT USED FOR UNKNOWN INDICATION
     Dosage: 5 MILLIGRAM, QD (2.5 MG, BID, 2.5 MG, 1?0?1?0)
     Route: 065
  8. ALLOPURINOL. [Suspect]
     Active Substance: ALLOPURINOL
     Indication: PRODUCT USED FOR UNKNOWN INDICATION
     Dosage: 100 MG, QD
     Route: 065
  9. PANTOPRAZOL                        /01263201/ [Concomitant]
     Active Substance: PANTOPRAZOLE
     Indication: PRODUCT USED FOR UNKNOWN INDICATION
     Dosage: 80 MILLIGRAM, QD (40 MG, BID, 40 MG, 1?0?1?0)
     Route: 065
  10. METAMIZOL                          /06276701/ [Concomitant]
     Active Substance: METAMIZOLE
     Dosage: 500 MILLIGRAM, Q6H (500 MG, 1?1?1?1)

REACTIONS (4)
  - Tachycardia [Unknown]
  - Arthralgia [Unknown]
  - Arrhythmia [Unknown]
  - Musculoskeletal pain [Unknown]
